FAERS Safety Report 6382189-0 (Version None)
Quarter: 2009Q3

REPORT INFORMATION
  Report Type: 
  Country: None (occurrence: None)
  Receive Date: 20090930
  Receipt Date: 20090917
  Transmission Date: 20100115
  Serious: Yes (Hospitalization, Disabling)
  Sender: FDA-Public Use
  Company Number: GB-PFIZER INC-2006062312

PATIENT
  Age: 54 Year

DRUGS (4)
  1. LYRICA [Suspect]
     Indication: BACK PAIN
     Route: 048
     Dates: start: 20060424, end: 20060505
  2. LYRICA [Suspect]
     Indication: PAIN IN EXTREMITY
  3. NEOTIGASON [Concomitant]
     Indication: KERATOSIS FOLLICULAR
     Dosage: 25 MG, 1X/DAY
     Dates: start: 19820101
  4. DICLOFENAC [Concomitant]
     Indication: PAIN
     Dosage: 50 MG, 3X/DAY
     Dates: start: 20050101

REACTIONS (3)
  - ABASIA [None]
  - CEREBRAL INFARCTION [None]
  - HEMIPARESIS [None]
